FAERS Safety Report 20462365 (Version 2)
Quarter: 2022Q1

REPORT INFORMATION
  Report Type: Report from Study
  Country: IT (occurrence: IT)
  Receive Date: 20220211
  Receipt Date: 20220323
  Transmission Date: 20220424
  Serious: Yes (Death, Other)
  Sender: FDA-Public Use
  Company Number: IT-NOVARTISPH-NVSC2022IT029732

PATIENT
  Age: 71 Year
  Sex: Male

DRUGS (1)
  1. RYDAPT [Suspect]
     Active Substance: MIDOSTAURIN
     Indication: Systemic mastocytosis
     Dosage: UNK
     Route: 065
     Dates: start: 20170719, end: 20171101

REACTIONS (7)
  - Systemic mastocytosis [Fatal]
  - Malignant neoplasm progression [Fatal]
  - Myelodysplastic syndrome [Unknown]
  - Cytopenia [Unknown]
  - Bronchopulmonary aspergillosis [Unknown]
  - Therapy non-responder [Unknown]
  - Urinary tract infection [Unknown]

NARRATIVE: CASE EVENT DATE: 20190501
